FAERS Safety Report 8724417 (Version 4)
Quarter: 2013Q2

REPORT INFORMATION
  Report Type: Report from Study
  Country: US (occurrence: US)
  Receive Date: 20120815
  Receipt Date: 20130510
  Transmission Date: 20140414
  Serious: Yes (Other)
  Sender: FDA-Public Use
  Company Number: PHEH2012US013418

PATIENT
  Age: 73 Year
  Sex: Female

DRUGS (5)
  1. TOBI [Suspect]
     Indication: LUNG DISORDER
     Dosage: 5 ML, BID
     Dates: start: 20120601
  2. TOBI [Suspect]
     Indication: BRONCHITIS
     Dosage: 300 MG, BID
  3. TOBI [Suspect]
     Dosage: 5 ML, BID
     Dates: start: 20120416
  4. TOBI [Suspect]
     Dosage: 300 MG, QD
  5. ADVAIR [Concomitant]
     Dosage: UNK, BID

REACTIONS (6)
  - Hip fracture [Unknown]
  - Fall [Unknown]
  - Wrist fracture [Unknown]
  - Pain [Unknown]
  - Hearing impaired [Unknown]
  - Dysphonia [Recovering/Resolving]
